FAERS Safety Report 5966235-1 (Version None)
Quarter: 2008Q4

REPORT INFORMATION
  Report Type: 
  Country: None (occurrence: None)
  Receive Date: 20081125
  Receipt Date: 20081120
  Transmission Date: 20090506
  Serious: Yes (Death)
  Sender: FDA-Public Use
  Company Number: JP-AVENTIS-200813490JP

PATIENT
  Age: 69 Year
  Sex: Male
  Weight: 71.2 kg

DRUGS (9)
  1. TAXOTERE [Suspect]
     Route: 042
     Dates: start: 20080903, end: 20080903
  2. DECADRON [Concomitant]
     Indication: PROPHYLAXIS
     Route: 042
     Dates: start: 20080903, end: 20080903
  3. SEROTONE [Concomitant]
     Indication: ANTIEMETIC SUPPORTIVE CARE
     Route: 042
     Dates: start: 20080903, end: 20080903
  4. LOXONIN                            /00890701/ [Concomitant]
     Indication: PAIN
     Route: 048
     Dates: start: 20080606
  5. MUCOSTA [Concomitant]
     Indication: GASTRITIS
     Dates: start: 20080811
  6. OXYCONTIN [Concomitant]
     Indication: PAIN
     Route: 048
     Dates: start: 20080904
  7. OXINORM [Concomitant]
     Indication: PAIN
     Dates: start: 20080903
  8. CRAVIT [Concomitant]
     Indication: UPPER RESPIRATORY TRACT INFLAMMATION
     Dates: start: 20080905, end: 20080918
  9. IMMUNOTHERAPY [Concomitant]
     Dates: start: 20080501

REACTIONS (1)
  - INTERSTITIAL LUNG DISEASE [None]
